FAERS Safety Report 24765408 (Version 1)
Quarter: 2024Q4

REPORT INFORMATION
  Report Type: Spontaneous
  Country: AU (occurrence: AU)
  Receive Date: 20241223
  Receipt Date: 20241223
  Transmission Date: 20250114
  Serious: Yes (Hospitalization)
  Sender: RECORDATI
  Company Number: AU-RECORDATI RARE DISEASE INC.-2024009991

PATIENT

DRUGS (1)
  1. ISTURISA [Suspect]
     Active Substance: OSILODROSTAT PHOSPHATE
     Indication: Cushing^s syndrome
     Dosage: 30 MG MORNING AND 50 MG NIGHT, BID

REACTIONS (2)
  - Hospitalisation [Not Recovered/Not Resolved]
  - Prescribed overdose [Recovered/Resolved]
